FAERS Safety Report 17769529 (Version 10)
Quarter: 2021Q4

REPORT INFORMATION
  Report Type: Report from Study
  Country: CA (occurrence: CA)
  Receive Date: 20200512
  Receipt Date: 20211003
  Transmission Date: 20220303
  Serious: Yes (Hospitalization, Other)
  Sender: FDA-Public Use
  Company Number: NVSC2020CA121877

PATIENT
  Age: 18 Year
  Sex: Female
  Weight: 71.6 kg

DRUGS (24)
  1. TRAMETINIB [Suspect]
     Active Substance: TRAMETINIB
     Indication: Neurofibroma
     Dosage: 1.5 MG, QD
     Route: 048
     Dates: start: 20200217
  2. TRAMETINIB [Suspect]
     Active Substance: TRAMETINIB
     Indication: Glioma
     Dosage: 1.5 MG, QD
     Route: 048
     Dates: start: 20200316, end: 20200318
  3. TRAMETINIB [Suspect]
     Active Substance: TRAMETINIB
     Dosage: 1.5 MG, QD
     Route: 048
     Dates: start: 20200408, end: 20200412
  4. TRAMETINIB [Suspect]
     Active Substance: TRAMETINIB
     Dosage: 0.75 MG, QD
     Route: 048
     Dates: start: 20200414, end: 20200428
  5. HYDROCORTISONE [Suspect]
     Active Substance: HYDROCORTISONE
     Indication: Hypopituitarism
     Dosage: 5 MG AM/ 10 MG HS
     Route: 042
     Dates: start: 20180326
  6. HYDROCORTISONE [Suspect]
     Active Substance: HYDROCORTISONE
     Dosage: 80 MG, ONCE/SINGLE
     Route: 042
     Dates: start: 20200513, end: 20200513
  7. HYDROCORTISONE [Suspect]
     Active Substance: HYDROCORTISONE
     Dosage: 15 MG, Q6H
     Route: 042
     Dates: start: 20200514, end: 20200515
  8. HYDROCORTISONE [Suspect]
     Active Substance: HYDROCORTISONE
     Dosage: 10 MG, Q6H
     Route: 042
     Dates: start: 20200515, end: 20200519
  9. HYDROCORTISONE [Suspect]
     Active Substance: HYDROCORTISONE
     Dosage: 10 MG, Q8H
     Route: 042
     Dates: start: 20200519
  10. LAMOTRIGINE [Suspect]
     Active Substance: LAMOTRIGINE
     Indication: Seizure
     Dosage: 150 MG, BID
     Route: 065
     Dates: start: 20150308
  11. ESTROGENS [Suspect]
     Active Substance: ESTROGENS
     Indication: Hypopituitarism
     Dosage: 1 PATCH 9-7 DAYS
     Route: 065
     Dates: start: 20200313
  12. DESMOPRESSIN [Concomitant]
     Active Substance: DESMOPRESSIN
     Indication: Diabetes insipidus
     Dosage: 100 UG, HS
     Route: 048
     Dates: start: 20191217
  13. DESMOPRESSIN [Concomitant]
     Active Substance: DESMOPRESSIN
     Dosage: FROM 100 UG TO 50 UG, DIE HS
     Route: 048
     Dates: start: 20200515
  14. CLOBAZAM [Concomitant]
     Active Substance: CLOBAZAM
     Indication: Seizure
     Dosage: 5 MG AM/ 15 MG HS
     Route: 048
     Dates: start: 20191105
  15. DOXYCYCLINE [Concomitant]
     Active Substance: DOXYCYCLINE
     Indication: Rash maculo-papular
     Dosage: 100 MG, 92 DAYS
     Route: 048
     Dates: start: 20200321
  16. POLYETHYLENE GLYCOL 3350 [Concomitant]
     Active Substance: POLYETHYLENE GLYCOL 3350
     Indication: Constipation
     Dosage: 17 ON DIC PRN
     Route: 048
     Dates: start: 20191107
  17. ONDANSETRON [Concomitant]
     Active Substance: ONDANSETRON
     Indication: Product used for unknown indication
     Dosage: UNK
     Route: 065
     Dates: start: 20200204
  18. LAMICTAL [Concomitant]
     Active Substance: LAMOTRIGINE
     Indication: Seizure
     Dosage: 150 MG, BID
     Route: 048
     Dates: start: 20150308
  19. ALESSE 28 [Concomitant]
     Active Substance: ETHINYL ESTRADIOL\LEVONORGESTREL
     Indication: Product used for unknown indication
     Dosage: UNK
     Route: 065
     Dates: start: 20180323
  20. HYDRALAZINE [Concomitant]
     Active Substance: HYDRALAZINE HYDROCHLORIDE
     Indication: Hypertension
     Dosage: 5 MG, PRN
     Route: 042
     Dates: start: 20200516, end: 20200516
  21. SYNTHROID [Concomitant]
     Active Substance: LEVOTHYROXINE SODIUM
     Indication: Hypopituitarism
     Dosage: 125 MG
     Route: 048
     Dates: start: 20130326, end: 20200514
  22. SYNTHROID [Concomitant]
     Active Substance: LEVOTHYROXINE SODIUM
     Dosage: UNK
     Route: 048
     Dates: start: 20200515
  23. DESOXIMETASONE [Concomitant]
     Active Substance: DESOXIMETASONE
     Indication: Product used for unknown indication
     Dosage: UNK
     Route: 065
     Dates: start: 20200318
  24. LEVOTHYROXINE [Concomitant]
     Active Substance: LEVOTHYROXINE
     Indication: Product used for unknown indication
     Dosage: UNK
     Route: 065
     Dates: start: 20180326

REACTIONS (6)
  - Anaemia [Recovered/Resolved]
  - C-reactive protein increased [Unknown]
  - Pancreatitis [Recovered/Resolved]
  - Lipase increased [Recovered/Resolved]
  - Urinary tract infection [Recovered/Resolved]
  - Intentional product misuse [Recovered/Resolved]

NARRATIVE: CASE EVENT DATE: 20200408
